FAERS Safety Report 24824407 (Version 1)
Quarter: 2025Q1

REPORT INFORMATION
  Report Type: Report from Study
  Country: US (occurrence: US)
  Receive Date: 20250109
  Receipt Date: 20250109
  Transmission Date: 20250409
  Serious: Yes (Other)
  Sender: TAKEDA
  Company Number: US-TAKEDA-2025TUS001906

PATIENT
  Sex: Female
  Weight: 72 kg

DRUGS (16)
  1. VEDOLIZUMAB [Suspect]
     Active Substance: VEDOLIZUMAB
     Indication: Crohn^s disease
  2. FAMOTIDINE [Concomitant]
     Active Substance: FAMOTIDINE
  3. LEVOTHYROXINE [Concomitant]
     Active Substance: LEVOTHYROXINE
  4. ONDANSETRON [Concomitant]
     Active Substance: ONDANSETRON
  5. METOPROLOL [Concomitant]
     Active Substance: METOPROLOL
  6. VITAMIN D3 [Concomitant]
     Active Substance: CHOLECALCIFEROL
  7. DONEPEZIL [Concomitant]
     Active Substance: DONEPEZIL
  8. FLUTICASONE PROPIONATE [Concomitant]
     Active Substance: FLUTICASONE PROPIONATE
  9. NIFEDIPINE [Concomitant]
     Active Substance: NIFEDIPINE
  10. VALSARTAN [Concomitant]
     Active Substance: VALSARTAN
  11. POTASSIUM CHLORIDE [Concomitant]
     Active Substance: POTASSIUM CHLORIDE
  12. FLUOXETINE [Concomitant]
     Active Substance: FLUOXETINE HYDROCHLORIDE
  13. CLOPIDOGREL [Concomitant]
     Active Substance: CLOPIDOGREL BISULFATE
  14. CHONDROITIN [Concomitant]
     Active Substance: CHONDROITIN
  15. GLUCOSAMINE MSM [Concomitant]
  16. PREDNISONE [Concomitant]
     Active Substance: PREDNISONE

REACTIONS (8)
  - Haematochezia [Unknown]
  - Rectal haemorrhage [Unknown]
  - Tremor [Unknown]
  - Periorbital swelling [Unknown]
  - Pain [Unknown]
  - Hyperhidrosis [Unknown]
  - Back pain [Unknown]
  - Oropharyngeal pain [Unknown]
